FAERS Safety Report 6788810-7 (Version None)
Quarter: 2010Q2

REPORT INFORMATION
  Report Type: 
  Country: None (occurrence: None)
  Receive Date: 20100623
  Receipt Date: 20080605
  Transmission Date: 20101027
  Serious: No
  Sender: FDA-Public Use
  Company Number: US-PFIZER INC-2008036180

PATIENT
  Sex: Female

DRUGS (10)
  1. GENOTROPIN [Suspect]
     Indication: CHRONIC FATIGUE SYNDROME
     Dates: start: 20080410
  2. GENOTROPIN [Suspect]
     Indication: HORMONE LEVEL ABNORMAL
  3. ALL OTHER THERAPEUTIC PRODUCTS [Concomitant]
  4. FISH OIL [Concomitant]
  5. PROVIGIL [Concomitant]
  6. SUBUTEX [Concomitant]
  7. CYMBALTA [Concomitant]
  8. WELLBUTRIN [Concomitant]
     Indication: DEPRESSION
  9. MULTIPLE VITAMINS [Concomitant]
  10. PARA-SELTZER [Concomitant]

REACTIONS (7)
  - ABDOMINAL PAIN UPPER [None]
  - DYSURIA [None]
  - FATIGUE [None]
  - FEELING ABNORMAL [None]
  - HEADACHE [None]
  - NAUSEA [None]
  - URINE ODOUR ABNORMAL [None]
